FAERS Safety Report 10025640 (Version 2)
Quarter: 2014Q2

REPORT INFORMATION
  Report Type: Spontaneous
  Country: US (occurrence: US)
  Receive Date: 20140320
  Receipt Date: 20140410
  Transmission Date: 20141212
  Serious: No
  Sender: FDA-Public Use
  Company Number: US-TEVA-469084USA

PATIENT
  Age: 83 Year
  Sex: Male

DRUGS (1)
  1. PROAIR HFA [Suspect]

REACTIONS (3)
  - Fall [Unknown]
  - Mobility decreased [Unknown]
  - Labyrinthitis [Unknown]
